FAERS Safety Report 9533127 (Version 2)
Quarter: 2013Q3

REPORT INFORMATION
  Report Type: Spontaneous
  Country: US (occurrence: US)
  Receive Date: 20130918
  Receipt Date: 20130918
  Transmission Date: 20140515
  Serious: No
  Sender: FDA-Public Use
  Company Number: US-PURDUE-USA-2011-0069622

PATIENT
  Sex: Female

DRUGS (2)
  1. BUTRANS [Suspect]
     Indication: PRODUCT USED FOR UNKNOWN INDICATION
     Dosage: 10 MCG/HR, DAILY
  2. BUTRANS [Suspect]
     Dosage: 5 MCG/HR, DAILY

REACTIONS (4)
  - Confusional state [Unknown]
  - Headache [Unknown]
  - Feeling abnormal [Unknown]
  - Inadequate analgesia [Unknown]
